FAERS Safety Report 10184733 (Version 4)
Quarter: 2014Q4

REPORT INFORMATION
  Report Type: Report from Study
  Country: JP (occurrence: JP)
  Receive Date: 20140521
  Receipt Date: 20141223
  Transmission Date: 20150528
  Serious: Yes (Hospitalization)
  Sender: FDA-Public Use
  Company Number: JP-ROCHE-1400909

PATIENT
  Age: 58 Year
  Sex: Male
  Weight: 64 kg

DRUGS (18)
  1. MARZULENE [Concomitant]
     Active Substance: SODIUM GUALENATE
     Route: 048
  2. FOSRENOL [Concomitant]
     Active Substance: LANTHANUM CARBONATE
     Route: 048
  3. FOSRENOL [Concomitant]
     Active Substance: LANTHANUM CARBONATE
     Route: 048
  4. LIPACREON [Concomitant]
     Active Substance: PANCRELIPASE
     Route: 048
  5. CINACALCET HYDROCHLORIDE [Concomitant]
     Active Substance: CINACALCET HYDROCHLORIDE
     Dosage: MORNING?DRUG REPORTED AS REGPARA
     Route: 048
  6. OXAROL [Concomitant]
     Active Substance: MAXACALCITOL
     Dosage: (MONDAY)
     Route: 042
     Dates: start: 20131216
  7. RENIVACE [Concomitant]
     Active Substance: ENALAPRIL
     Dosage: EVENING
     Route: 048
  8. FOIPAN [Concomitant]
     Active Substance: CAMOSTAT MESYLATE
     Route: 048
  9. POLARAMINE [Concomitant]
     Active Substance: DEXCHLORPHENIRAMINE MALEATE
     Route: 048
  10. NEXIUM [Concomitant]
     Active Substance: ESOMEPRAZOLE MAGNESIUM
     Dosage: BEFORE IT KNEADS
     Route: 048
  11. WARFARIN [Concomitant]
     Active Substance: WARFARIN
     Dosage: HD DAY: 1.5MG NON-HD DAY: 2MG
     Route: 048
  12. METHOXY POLYETHYLENE GLYCOL-EPOETIN BETA [Suspect]
     Active Substance: PEGZEREPOETIN ALFA
     Dosage: DOSAGE IS UNCERTAIN.
     Route: 042
     Dates: start: 20140513
  13. DORNER [Concomitant]
     Active Substance: BERAPROST SODIUM
     Route: 048
  14. AMLODIPINE [Concomitant]
     Active Substance: AMLODIPINE BESYLATE
     Dosage: MORNING
     Route: 048
  15. METHOXY POLYETHYLENE GLYCOL-EPOETIN BETA [Suspect]
     Active Substance: PEGZEREPOETIN ALFA
     Indication: NEPHROGENIC ANAEMIA
     Route: 042
     Dates: start: 20140203, end: 2014
  16. ARTIST [Concomitant]
     Active Substance: CARVEDILOL
     Dosage: MORNING
     Route: 048
  17. BISOLVON [Concomitant]
     Active Substance: BROMHEXINE HYDROCHLORIDE
     Route: 048
  18. ALLOID G [Concomitant]
     Active Substance: SODIUM ALGINATE
     Route: 065

REACTIONS (4)
  - Gastrointestinal haemorrhage [Recovering/Resolving]
  - Gastric ulcer [Recovering/Resolving]
  - Haematemesis [Recovered/Resolved]
  - Gastrooesophageal reflux disease [Recovering/Resolving]

NARRATIVE: CASE EVENT DATE: 20140423
